FAERS Safety Report 12520074 (Version 2)
Quarter: 2016Q3

REPORT INFORMATION
  Report Type: Spontaneous
  Country: US (occurrence: US)
  Receive Date: 20160701
  Receipt Date: 20160810
  Transmission Date: 20161109
  Serious: Yes (Death, Hospitalization, Other)
  Sender: FDA-Public Use
  Company Number: US-BRISTOL-MYERS SQUIBB COMPANY-BMS-2016-052372

PATIENT
  Age: 70 Year
  Sex: Female
  Weight: 72.56 kg

DRUGS (2)
  1. OPDIVO [Suspect]
     Active Substance: NIVOLUMAB
     Indication: METASTATIC MALIGNANT MELANOMA
     Dosage: 75 MG, Q3WK
     Route: 065
  2. IPILIMUMAB [Suspect]
     Active Substance: IPILIMUMAB
     Indication: METASTATIC MALIGNANT MELANOMA
     Dosage: 225 MG, Q3WK
     Route: 042
     Dates: end: 20151110

REACTIONS (4)
  - Endocarditis [Fatal]
  - Ventricular arrhythmia [Fatal]
  - Myocarditis [Fatal]
  - Myocardial necrosis marker increased [Fatal]

NARRATIVE: CASE EVENT DATE: 20151117
